FAERS Safety Report 5448809-X (Version None)
Quarter: 2007Q3

REPORT INFORMATION
  Report Type: 
  Country: None (occurrence: None)
  Receive Date: 20070911
  Receipt Date: 20070625
  Transmission Date: 20080115
  Serious: No
  Sender: FDA-Public Use
  Company Number: US-BRISTOL-MYERS SQUIBB COMPANY-13824776

PATIENT
  Sex: Female
  Weight: 57 kg

DRUGS (3)
  1. EMSAM [Suspect]
     Indication: DEPRESSION
     Route: 062
  2. KLONOPIN [Concomitant]
  3. DOXYCYCLINE [Concomitant]

REACTIONS (4)
  - ARTHRALGIA [None]
  - INSOMNIA [None]
  - MYALGIA [None]
  - NAUSEA [None]
